FAERS Safety Report 8970910 (Version 3)
Quarter: 2013Q1

REPORT INFORMATION
  Report Type: Spontaneous
  Country: GB (occurrence: GB)
  Receive Date: 20121218
  Receipt Date: 20130208
  Transmission Date: 20140127
  Serious: Yes (Other)
  Sender: FDA-Public Use
  Company Number: GB-PFIZER INC-2012314964

PATIENT
  Age: 30 Year
  Sex: 0

DRUGS (1)
  1. EPIPEN [Suspect]
     Indication: PRODUCT USED FOR UNKNOWN INDICATION
     Dosage: UNK
     Route: 065
     Dates: start: 20121212

REACTIONS (3)
  - Accidental exposure to product [Unknown]
  - Pain in extremity [Unknown]
  - Skin discolouration [Unknown]
